FAERS Safety Report 16887596 (Version 7)
Quarter: 2020Q1

REPORT INFORMATION
  Report Type: Report from Study
  Country: DE (occurrence: DE)
  Receive Date: 20191005
  Receipt Date: 20200120
  Transmission Date: 20200409
  Serious: Yes (Hospitalization, Other)
  Sender: FDA-Public Use
  Company Number: DE-BRISTOL-MYERS SQUIBB COMPANY-BMS-2019-094068

PATIENT
  Age: 64 Year
  Sex: Male

DRUGS (5)
  1. POVIDONE-IODINE. [Concomitant]
     Active Substance: POVIDONE-IODINE
     Indication: PROPHYLAXIS
     Dosage: 4 TIMES DAILY, 1 MEASURING SPOON
     Route: 065
     Dates: end: 20191129
  2. MORPHIN [MORPHINE SULFATE] [Concomitant]
     Indication: PRODUCT USED FOR UNKNOWN INDICATION
     Dosage: AS NEEDED, MAX. 40 MG PER DAY
     Route: 065
     Dates: end: 20191129
  3. PARACETAMOL [Concomitant]
     Active Substance: ACETAMINOPHEN
     Indication: PRODUCT USED FOR UNKNOWN INDICATION
     Dosage: AS NEEDED, MAX 2 G PER DAY
     Route: 065
  4. NIVOLUMAB [Suspect]
     Active Substance: NIVOLUMAB
     Indication: SQUAMOUS CELL CARCINOMA OF HEAD AND NECK
     Dosage: 240 MILLIGRAM, Q2WK
     Route: 042
     Dates: start: 20190829
  5. DEXPANTHENOL. [Concomitant]
     Active Substance: DEXPANTHENOL
     Indication: PROPHYLAXIS
     Dosage: 4 TIMES DAILY, 1 MEASURING SPOON
     Route: 065
     Dates: end: 20191129

REACTIONS (6)
  - Hepatic cirrhosis [Recovered/Resolved]
  - Hepatic failure [Not Recovered/Not Resolved]
  - Mucosal inflammation [Recovered/Resolved]
  - Anaemia [Unknown]
  - Hypothyroidism [Unknown]
  - Ascites [Recovered/Resolved]

NARRATIVE: CASE EVENT DATE: 20190926
